FAERS Safety Report 18279555 (Version 1)
Quarter: 2020Q3

REPORT INFORMATION
  Report Type: Spontaneous
  Country: US (occurrence: US)
  Receive Date: 20200917
  Receipt Date: 20200917
  Transmission Date: 20201103
  Serious: No
  Sender: FDA-Public Use
  Company Number: US-ADAMAS PHARMA, LLC-2020ADA01651

PATIENT
  Sex: Female
  Weight: 117.46 kg

DRUGS (23)
  1. CALCIUM/D [Concomitant]
  2. EXELON [Concomitant]
     Active Substance: RIVASTIGMINE TARTRATE
  3. LEVOTHYROXINE. [Concomitant]
     Active Substance: LEVOTHYROXINE
  4. MELATONIN [Concomitant]
     Active Substance: MELATONIN
  5. COENZYME Q10 [Concomitant]
     Active Substance: DIETARY SUPPLEMENT\UBIDECARENONE
  6. MULTI?VITAMIN [Concomitant]
     Active Substance: .ALPHA.-TOCOPHEROL ACETATE, DL-\ASCORBIC ACID\CYANOCOBALAMIN\FLUORIDE ION\FOLIC ACID\NIACIN\PYRIDOXINE\RIBOFLAVIN\THIAMINE\VITAMIN A\VITAMIN D
  7. GOCOVRI [Suspect]
     Active Substance: AMANTADINE
     Indication: DYSKINESIA
     Dosage: 137 MG, 1X/DAY AT BEDTIME
     Route: 048
     Dates: start: 20200612, end: 20200618
  8. GOCOVRI [Suspect]
     Active Substance: AMANTADINE
     Dosage: UNK TITRATED DOSE (DECREASED)
     Route: 048
     Dates: start: 20200706, end: 20200706
  9. FISH OIL [Concomitant]
     Active Substance: FISH OIL
  10. SUPER B COMPLEX [Concomitant]
     Active Substance: CYANOCOBALAMIN\DEXPANTHENOL\NIACINAMIDE\PYRIDOXINE HYDROCHLORIDE\RIBOFLAVIN 5^-PHOSPHATE SODIUM\THIAMINE HYDROCHLORIDE\VITAMIN B COMPLEX
  11. LISINOPRIL. [Concomitant]
     Active Substance: LISINOPRIL
  12. NEUPRO [Concomitant]
     Active Substance: ROTIGOTINE
  13. OMEPRAZOLE. [Concomitant]
     Active Substance: OMEPRAZOLE
  14. GOCOVRI [Suspect]
     Active Substance: AMANTADINE
     Dosage: 274 MG, 1X/DAY AT BEDTIME
     Route: 048
     Dates: start: 20200619, end: 20200705
  15. FOLIC ACID. [Concomitant]
     Active Substance: FOLIC ACID
  16. LYSINE [Concomitant]
     Active Substance: LYSINE
  17. POTASSIUM CHLORIDE. [Concomitant]
     Active Substance: POTASSIUM CHLORIDE
  18. IRON [Concomitant]
     Active Substance: IRON
  19. SELENIUM [Concomitant]
     Active Substance: SELENIUM
  20. VITAMIN B?1 [Concomitant]
     Active Substance: THIAMINE HYDROCHLORIDE
  21. RYTARY [Concomitant]
     Active Substance: CARBIDOPA\LEVODOPA
  22. AZILECT [Concomitant]
     Active Substance: RASAGILINE MESYLATE
  23. LUTEIN [Concomitant]
     Active Substance: LUTEIN

REACTIONS (10)
  - Weight decreased [Recovered/Resolved]
  - Insomnia [Recovered/Resolved]
  - Decreased appetite [Recovered/Resolved]
  - Depressed mood [Recovered/Resolved]
  - Hallucinations, mixed [Recovered/Resolved]
  - Confusional state [Recovered/Resolved]
  - Sleep attacks [Recovered/Resolved]
  - Dry mouth [Recovered/Resolved]
  - Nausea [Recovered/Resolved]
  - Product dose omission issue [Recovered/Resolved]

NARRATIVE: CASE EVENT DATE: 2020
